FAERS Safety Report 4451262-6 (Version None)
Quarter: 2004Q3

REPORT INFORMATION
  Report Type: 
  Country: None (occurrence: None)
  Receive Date: 20040915
  Receipt Date: 20040915
  Transmission Date: 20050211
  Serious: Yes (Other)
  Sender: FDA-Public Use
  Company Number: None

PATIENT
  Age: 47 Year
  Sex: Female
  Weight: 63.5036 kg

DRUGS (2)
  1. EFFEXOR XR [Suspect]
     Indication: HOT FLUSH
     Dosage: 1 DAILY ORAL
     Route: 048
     Dates: start: 20030110, end: 20030810
  2. EFFEXOR XR [Suspect]
     Indication: MENOPAUSE
     Dosage: 1 DAILY ORAL
     Route: 048
     Dates: start: 20030110, end: 20030810

REACTIONS (3)
  - DIZZINESS [None]
  - HYPOAESTHESIA [None]
  - SUICIDAL IDEATION [None]
